FAERS Safety Report 21500103 (Version 1)
Quarter: 2022Q4

REPORT INFORMATION
  Report Type: Report from Study
  Country: DE (occurrence: DE)
  Receive Date: 20221024
  Receipt Date: 20221024
  Transmission Date: 20230113
  Serious: Yes (Other)
  Sender: FDA-Public Use
  Company Number: DE-BIOGEN-2022BI01162924

PATIENT
  Sex: Female

DRUGS (1)
  1. PLEGRIDY [Suspect]
     Active Substance: PEGINTERFERON BETA-1A
     Indication: Multiple sclerosis
     Route: 050
     Dates: start: 20161129

REACTIONS (1)
  - Pituitary cyst [Not Recovered/Not Resolved]

NARRATIVE: CASE EVENT DATE: 20220101
